FAERS Safety Report 18528365 (Version 1)
Quarter: 2020Q4

REPORT INFORMATION
  Report Type: Spontaneous
  Country: US (occurrence: US)
  Receive Date: 20201120
  Receipt Date: 20201120
  Transmission Date: 20210114
  Serious: Yes (Other)
  Sender: FDA-Public Use
  Company Number: US-VERTEX PHARMACEUTICALS-2020-022722

PATIENT
  Age: 21 Year
  Sex: Male
  Weight: 89 kg

DRUGS (1)
  1. TRIKAFTA [Suspect]
     Active Substance: ELEXACAFTOR\IVACAFTOR\TEZACAFTOR
     Indication: CYSTIC FIBROSIS
     Dosage: 2 TAB (ELEXA100MG/TEZA50MG/IVA75MG) IN MORNING 1 TAB (IVA150MG) IN EVENING
     Route: 048

REACTIONS (1)
  - Nasal polyps [Unknown]

NARRATIVE: CASE EVENT DATE: 20201102
